FAERS Safety Report 9219504 (Version 1)
Quarter: 2013Q2

REPORT INFORMATION
  Report Type: Spontaneous
  Country: CN (occurrence: CN)
  Receive Date: 20130409
  Receipt Date: 20130409
  Transmission Date: 20140414
  Serious: Yes (Other)
  Sender: FDA-Public Use
  Company Number: CN-BRISTOL-MYERS SQUIBB COMPANY-18726265

PATIENT
  Age: 61 Year
  Sex: Male

DRUGS (1)
  1. GLUCOPHAGE [Suspect]
     Dosage: 1DF:HALF A TAB OF 0.85G IN THE MORNING, ONE TAB OF 0.85G IN MID-DAY AND HALF A TAB OF 0.85G AT NT
     Route: 048

REACTIONS (1)
  - Plasma cell myeloma [Unknown]
